FAERS Safety Report 5624403-2 (Version None)
Quarter: 2008Q1

REPORT INFORMATION
  Report Type: 
  Country: None (occurrence: None)
  Receive Date: 20080213
  Receipt Date: 20080204
  Transmission Date: 20080703
  Serious: No
  Sender: FDA-Public Use
  Company Number: US-JNJFOC-20080201280

PATIENT
  Sex: Male
  Weight: 99.79 kg

DRUGS (4)
  1. INVEGA [Suspect]
     Indication: SCHIZOPHRENIA
     Route: 048
  2. ASPIRIN [Concomitant]
     Indication: CARDIAC DISORDER
     Route: 048
  3. PRILOSEC OTC [Concomitant]
     Indication: GASTRIC DISORDER
     Route: 048
  4. BLOOD PRESSURE MEDICATION [Concomitant]
     Indication: HYPERTENSION
     Route: 048

REACTIONS (4)
  - HALLUCINATION [None]
  - PARANOIA [None]
  - PSYCHOTIC DISORDER [None]
  - WRONG TECHNIQUE IN DRUG USAGE PROCESS [None]
